FAERS Safety Report 4480541-1 (Version None)
Quarter: 2004Q4

REPORT INFORMATION
  Report Type: 
  Country: None (occurrence: None)
  Receive Date: 20041019
  Receipt Date: 20040924
  Transmission Date: 20050328
  Serious: No
  Sender: FDA-Public Use
  Company Number: 2004UW20186

PATIENT
  Age: 51 Year
  Sex: Female

DRUGS (3)
  1. SEROQUEL [Suspect]
     Dosage: 100 MG PO
     Route: 048
  2. APO-DOXEPIN [Concomitant]
  3. CLONAZEPAM [Concomitant]

REACTIONS (4)
  - ASTHENIA [None]
  - BALANCE DISORDER [None]
  - LETHARGY [None]
  - PALPITATIONS [None]
